FAERS Safety Report 23844022 (Version 1)
Quarter: 2024Q2

REPORT INFORMATION
  Report Type: Spontaneous
  Country: US (occurrence: US)
  Receive Date: 20240510
  Receipt Date: 20240510
  Transmission Date: 20240716
  Serious: No
  Sender: FDA-Public Use
  Company Number: US-SA-SAC20240503000463

PATIENT
  Age: 36 Year
  Sex: Female

DRUGS (1)
  1. DUPIXENT [Suspect]
     Active Substance: DUPILUMAB
     Indication: Eosinophilic oesophagitis
     Dosage: 300 MG, 1X
     Route: 058
     Dates: start: 20240428, end: 20240428

REACTIONS (3)
  - Injection site urticaria [Recovered/Resolved]
  - Injection site pruritus [Recovering/Resolving]
  - Injection site erythema [Unknown]

NARRATIVE: CASE EVENT DATE: 20240428
